FAERS Safety Report 23762028 (Version 3)
Quarter: 2025Q1

REPORT INFORMATION
  Report Type: Spontaneous
  Country: CA (occurrence: CA)
  Receive Date: 20240419
  Receipt Date: 20250313
  Transmission Date: 20250409
  Serious: Yes (Hospitalization)
  Sender: TAKEDA
  Company Number: CA-TAKEDA-2024TUS036313

PATIENT
  Age: 28 Year
  Sex: Male

DRUGS (1)
  1. ENTYVIO [Suspect]
     Active Substance: VEDOLIZUMAB
     Indication: Colitis ulcerative
     Dosage: 300 MILLIGRAM, Q4WEEKS
     Dates: start: 20220825

REACTIONS (4)
  - Platelet count decreased [Unknown]
  - Lymphadenopathy [Recovering/Resolving]
  - Off label use [Unknown]
  - B-lymphocyte count increased [Unknown]

NARRATIVE: CASE EVENT DATE: 20220825
